FAERS Safety Report 23307518 (Version 1)
Quarter: 2023Q4

REPORT INFORMATION
  Report Type: Spontaneous
  Country: PE (occurrence: None)
  Receive Date: 20231215
  Receipt Date: 20231215
  Transmission Date: 20240110
  Serious: Yes (Disabling)
  Sender: FDA-Public Use
  Company Number: None

PATIENT
  Age: 48 Year
  Sex: Male
  Weight: 75 kg

DRUGS (4)
  1. CIPROFLOXACIN [Suspect]
     Active Substance: CIPROFLOXACIN
     Indication: Salmonellosis
     Dates: start: 20210810, end: 20210816
  2. Nitokkinaise [Concomitant]
  3. VITAMIN B12 [Concomitant]
     Active Substance: CYANOCOBALAMIN
  4. VITAMIN C [Concomitant]
     Active Substance: ASCORBIC ACID

REACTIONS (17)
  - Irritable bowel syndrome [None]
  - Fibromyalgia [None]
  - Chronic fatigue syndrome [None]
  - Palpitations [None]
  - Muscle atrophy [None]
  - Nerve injury [None]
  - Insomnia [None]
  - Vision blurred [None]
  - Tinnitus [None]
  - Renal disorder [None]
  - Liver disorder [None]
  - Pancreatic disorder [None]
  - Memory impairment [None]
  - Gastritis [None]
  - Heart rate increased [None]
  - Gallbladder disorder [None]
  - Oxidative stress [None]

NARRATIVE: CASE EVENT DATE: 20210816
